FAERS Safety Report 17438796 (Version 1)
Quarter: 2020Q1

REPORT INFORMATION
  Report Type: Spontaneous
  Country: CZ (occurrence: CZ)
  Receive Date: 20200220
  Receipt Date: 20200220
  Transmission Date: 20200409
  Serious: Yes (Other)
  Sender: FDA-Public Use
  Company Number: CZ-TEVA-2020-CZ-1188975

PATIENT
  Sex: Male

DRUGS (4)
  1. ABILIFY [Suspect]
     Active Substance: ARIPIPRAZOLE
     Dosage: 10MG
     Route: 065
  2. SPERSADEX [Suspect]
     Active Substance: DEXAMETHASONE SODIUM PHOSPHATE
     Route: 065
  3. FLUCON (FLUOROMETHOLONE) [Suspect]
     Active Substance: FLUOROMETHOLONE
     Route: 065
  4. QUETIAPIN TEVA [Suspect]
     Active Substance: QUETIAPINE
     Dosage: 300MG
     Route: 065

REACTIONS (3)
  - Corneal erosion [Unknown]
  - Intraocular pressure increased [Unknown]
  - Conjunctivitis [Not Recovered/Not Resolved]
